FAERS Safety Report 7025377-2 (Version None)
Quarter: 2010Q4

REPORT INFORMATION
  Report Type: 
  Country: None (occurrence: None)
  Receive Date: 20101001
  Receipt Date: 20100921
  Transmission Date: 20110411
  Serious: Yes (Other)
  Sender: FDA-Public Use
  Company Number: PHHY2010US42695

PATIENT
  Sex: Female
  Weight: 62 kg

DRUGS (1)
  1. RECLAST [Suspect]
     Indication: OSTEOPOROSIS
     Dosage: 5 MG
     Route: 042
     Dates: start: 20100628, end: 20100628

REACTIONS (5)
  - CHILLS [None]
  - DIZZINESS [None]
  - INFLUENZA LIKE ILLNESS [None]
  - MUSCLE FATIGUE [None]
  - PYREXIA [None]
